FAERS Safety Report 6853326-6 (Version None)
Quarter: 2010Q3

REPORT INFORMATION
  Report Type: 
  Country: None (occurrence: None)
  Receive Date: 20100717
  Receipt Date: 20071203
  Transmission Date: 20110219
  Serious: Yes (Other)
  Sender: FDA-Public Use
  Company Number: US-PFIZER INC-2007104083

PATIENT
  Sex: Female
  Weight: 59.09 kg

DRUGS (3)
  1. CHANTIX [Suspect]
     Indication: SMOKING CESSATION THERAPY
     Route: 048
     Dates: start: 20071026
  2. MAXZIDE [Concomitant]
     Indication: FLUID RETENTION
  3. ALPRAZOLAM [Concomitant]

REACTIONS (3)
  - INSOMNIA [None]
  - RASH [None]
  - URTICARIA [None]
